FAERS Safety Report 5980661-6 (Version None)
Quarter: 2008Q4

REPORT INFORMATION
  Report Type: 
  Country: None (occurrence: None)
  Receive Date: 20081205
  Receipt Date: 20080326
  Transmission Date: 20090506
  Serious: No
  Sender: FDA-Public Use
  Company Number: A0713103A

PATIENT
  Age: 25 Year
  Sex: Female

DRUGS (1)
  1. COMMIT [Suspect]
     Dates: start: 20080229, end: 20080229

REACTIONS (9)
  - ASTHENIA [None]
  - DIZZINESS [None]
  - MALAISE [None]
  - ORAL PAIN [None]
  - OROPHARYNGEAL DISCOMFORT [None]
  - PHARYNGEAL OEDEMA [None]
  - RETCHING [None]
  - TREMOR [None]
  - VOMITING [None]
